FAERS Safety Report 9606550 (Version 2)
Quarter: 2013Q4

REPORT INFORMATION
  Report Type: Spontaneous
  Country: US (occurrence: US)
  Receive Date: 20131008
  Receipt Date: 20131008
  Transmission Date: 20140711
  Serious: No
  Sender: FDA-Public Use
  Company Number: US-AMGEN-USASP2013046216

PATIENT
  Age: 68 Year
  Sex: Female
  Weight: 72.5 kg

DRUGS (3)
  1. PROLIA [Suspect]
     Indication: OSTEOPOROSIS POSTMENOPAUSAL
     Dosage: UNK UNK, Q6MO
     Route: 058
     Dates: start: 20130619
  2. CALCIUM [Concomitant]
     Route: 048
  3. VITAMIN D                          /00107901/ [Concomitant]
     Route: 048

REACTIONS (3)
  - Dizziness [Recovered/Resolved]
  - Arthralgia [Recovered/Resolved]
  - Pyrexia [Recovering/Resolving]
